FAERS Safety Report 12990572 (Version 3)
Quarter: 2017Q3

REPORT INFORMATION
  Report Type: Report from Study
  Country: US (occurrence: US)
  Receive Date: 20161201
  Receipt Date: 20170911
  Transmission Date: 20171127
  Serious: No
  Sender: FDA-Public Use
  Company Number: PHEH2016US031252

PATIENT
  Age: 30 Year
  Sex: Female

DRUGS (1)
  1. AFINITOR [Suspect]
     Active Substance: EVEROLIMUS
     Indication: ANGIOMYOLIPOMA
     Dosage: 5 MG, QD
     Route: 048
     Dates: start: 20161123

REACTIONS (5)
  - Anxiety [Unknown]
  - Ageusia [Unknown]
  - Bruxism [Unknown]
  - Pain in jaw [Unknown]
  - Tongue blistering [Unknown]

NARRATIVE: CASE EVENT DATE: 20161202
